FAERS Safety Report 8971472 (Version 1)
Quarter: 2012Q4

REPORT INFORMATION
  Report Type: 
  Country: US (occurrence: US)
  Receive Date: 20121217
  Receipt Date: 20121217
  Transmission Date: 20130627
  Serious: Yes (Life-Threatening, Hospitalization)
  Sender: FDA-Public Use
  Company Number: US-BAYER-2012-130357

PATIENT
  Age: 76 Year
  Sex: Female

DRUGS (16)
  1. BAYER GENUINE ASPIRIN ORIGINAL STRENGTH [Suspect]
     Dosage: UNK
     Dates: end: 20121106
  2. SAXAGLIPTIN [Suspect]
     Indication: TYPE 2 DIABETES MELLITUS
     Dosage: UNK
     Dates: start: 20101124, end: 20110323
  3. SAXAGLIPTIN [Suspect]
     Indication: TYPE 2 DIABETES MELLITUS
     Dosage: UNK
     Dates: start: 20110713, end: 20120219
  4. SAXAGLIPTIN [Suspect]
     Indication: TYPE 2 DIABETES MELLITUS
     Dosage: UNK
     Dates: start: 20120308
  5. HUMALOG [Suspect]
     Indication: TYPE 2 DIABETES MELLITUS
     Dosage: 15 iu, UNK
     Route: 058
     Dates: end: 20120423
  6. HUMALOG [Suspect]
     Indication: TYPE 2 DIABETES MELLITUS
     Dosage: 30 iu, UNK
     Dates: start: 20120423
  7. PLACEBO [Suspect]
     Indication: TYPE 2 DIABETES MELLITUS
     Dosage: UNK
     Dates: start: 20101124
  8. LASIX [Suspect]
     Dosage: 120 mg, UNK
     Dates: start: 20121106, end: 20121108
  9. BETA BLOCKING AGENTS [Concomitant]
  10. STATIN [Concomitant]
  11. ALDOSTERONE INHIBITOR [Concomitant]
  12. ANTI-ANGINAL AGENTS [Concomitant]
  13. FIBRIC ACID [Concomitant]
  14. DIURETICS [Concomitant]
  15. NITRATES [Concomitant]
  16. ANGIOTENSIN CONVERTING ENZYME INHIBITOR [Concomitant]

REACTIONS (8)
  - Renal failure acute [Recovered/Resolved]
  - Faeces discoloured [Recovered/Resolved]
  - Gastrointestinal haemorrhage [Recovered/Resolved]
  - Haematocrit decreased [Recovered/Resolved]
  - Haemoglobin decreased [Recovered/Resolved]
  - Cardiac failure congestive [Recovered/Resolved]
  - Blood creatinine increased [Recovered/Resolved]
  - Glomerular filtration rate decreased [Recovered/Resolved]
